FAERS Safety Report 6013983-3 (Version None)
Quarter: 2008Q4

REPORT INFORMATION
  Report Type: 
  Country: None (occurrence: None)
  Receive Date: 20081219
  Receipt Date: 20081110
  Transmission Date: 20090506
  Serious: No
  Sender: FDA-Public Use
  Company Number: A0755614A

PATIENT
  Age: 70 Year
  Sex: Male

DRUGS (4)
  1. AVANDARYL [Suspect]
     Dosage: 1TAB PER DAY
     Route: 048
     Dates: start: 20081029
  2. METOPROLOL TARTRATE [Concomitant]
  3. DYNACIRC CR [Concomitant]
  4. LISINOPRIL [Concomitant]

REACTIONS (1)
  - THROAT TIGHTNESS [None]
